FAERS Safety Report 4467245-6 (Version None)
Quarter: 2004Q4

REPORT INFORMATION
  Report Type: 
  Country: None (occurrence: None)
  Receive Date: 20041006
  Receipt Date: 20020116
  Transmission Date: 20050328
  Serious: Yes (Hospitalization)
  Sender: FDA-Public Use
  Company Number: FI-MERCK-0201FIN00008

PATIENT
  Age: 40 Year
  Sex: Male

DRUGS (7)
  1. ASPARAGINASE (AS DRUG) [Suspect]
     Indication: ACUTE LYMPHOCYTIC LEUKAEMIA
     Route: 042
     Dates: start: 20011119, end: 20011202
  2. CANCIDAS [Suspect]
     Indication: ASPERGILLOSIS
     Route: 041
     Dates: start: 20010927, end: 20011205
  3. MOLGRAMOSTIM [Concomitant]
     Route: 058
     Dates: start: 20011124, end: 20011130
  4. POTASSIUM CHLORIDE [Concomitant]
     Route: 048
  5. SULFAMETHOXAZOLE AND TRIMETHOPRIM [Concomitant]
     Indication: PROPHYLAXIS
     Route: 048
  6. TROPISETRON HYDROCHLORIDE [Concomitant]
     Route: 048
  7. VANCOMYCIN HYDROCHLORIDE [Suspect]
     Indication: STAPHYLOCOCCAL INFECTION
     Route: 041
     Dates: start: 20011127, end: 20011201

REACTIONS (10)
  - ALANINE AMINOTRANSFERASE INCREASED [None]
  - ASPARTATE AMINOTRANSFERASE INCREASED [None]
  - ASPIRATION BONE MARROW ABNORMAL [None]
  - BLOOD CREATININE INCREASED [None]
  - CATHETER SITE INFECTION [None]
  - DERMATITIS [None]
  - EOSINOPHIL COUNT INCREASED [None]
  - HEPATIC FUNCTION ABNORMAL [None]
  - PRURITUS [None]
  - STAPHYLOCOCCAL INFECTION [None]
